FAERS Safety Report 17125576 (Version 3)
Quarter: 2020Q1

REPORT INFORMATION
  Report Type: Spontaneous
  Country: US (occurrence: US)
  Receive Date: 20191207
  Receipt Date: 20200113
  Transmission Date: 20200409
  Serious: No
  Sender: FDA-Public Use
  Company Number: US-VERTEX PHARMACEUTICALS-2019-012090

PATIENT
  Age: 16 Year
  Sex: Female

DRUGS (12)
  1. TOBI PODHALER [Concomitant]
     Active Substance: TOBRAMYCIN
  2. FLONASE [MOMETASONE FUROATE] [Concomitant]
     Active Substance: MOMETASONE FUROATE
  3. SINGULAIR [Concomitant]
     Active Substance: MONTELUKAST SODIUM
  4. ZYRTEC [Concomitant]
     Active Substance: CETIRIZINE HYDROCHLORIDE
  5. PULMOZYME [Concomitant]
     Active Substance: DORNASE ALFA
  6. ETHINYL OESTRADIOL [Concomitant]
     Active Substance: ETHINYL ESTRADIOL
  7. TRIKAFTA [Suspect]
     Active Substance: ELEXACAFTOR\IVACAFTOR\TEZACAFTOR
     Indication: CYSTIC FIBROSIS
     Dosage: 2 TABLETS (100MG ELEXACAFTOR/ 50MG TEZACAFTOR/ 75MG IVACAFTOR) AM; 1 TABLET (150MG IVACAFTOR) PM
     Route: 048
     Dates: start: 20191121
  8. CAYSTON [Concomitant]
     Active Substance: AZTREONAM
  9. QVAR [Concomitant]
     Active Substance: BECLOMETHASONE DIPROPIONATE
  10. AZELASTINE. [Concomitant]
     Active Substance: AZELASTINE HYDROCHLORIDE
  11. AZITHROMYCIN ANHYDROUS. [Concomitant]
     Active Substance: AZITHROMYCIN ANHYDROUS
  12. LEVOMEFOLATE CALCIUM [Concomitant]
     Active Substance: LEVOMEFOLATE CALCIUM

REACTIONS (5)
  - Nausea [Recovered/Resolved]
  - Upper-airway cough syndrome [Recovered/Resolved]
  - Dizziness [Recovered/Resolved]
  - Urticaria [Recovered/Resolved]
  - Oropharyngeal pain [Recovered/Resolved]

NARRATIVE: CASE EVENT DATE: 20191129
